FAERS Safety Report 4910779-8 (Version None)
Quarter: 2006Q1

REPORT INFORMATION
  Report Type: 
  Country: None (occurrence: None)
  Receive Date: 20060214
  Receipt Date: 20060203
  Transmission Date: 20060701
  Serious: Yes (Other)
  Sender: FDA-Public Use
  Company Number: JP-JNJFOC-20060105894

PATIENT
  Age: 53 Year
  Sex: Female

DRUGS (4)
  1. RISPERDAL [Suspect]
     Indication: SCHIZOPHRENIA
     Route: 048
  2. BIPERIDEN HYDROCHLORIDE TAB [Concomitant]
  3. CHLORPROMAZINE-PROMETHAZINE COMBINED DRUG [Concomitant]
  4. FLUNITRAZEPAM [Concomitant]

REACTIONS (2)
  - HAEMOGLOBIN DECREASED [None]
  - PLATELET COUNT DECREASED [None]
